FAERS Safety Report 18514751 (Version 2)
Quarter: 2021Q1

REPORT INFORMATION
  Report Type: Other
  Country: JP (occurrence: JP)
  Receive Date: 20201117
  Receipt Date: 20210104
  Transmission Date: 20210419
  Serious: Yes (Hospitalization)
  Sender: FDA-Public Use
  Company Number: JP-ROCHE-2630312

PATIENT
  Age: 67 Year
  Sex: Male
  Weight: 65 kg

DRUGS (8)
  1. OBINUTUZUMAB. [Suspect]
     Active Substance: OBINUTUZUMAB
     Route: 041
     Dates: start: 20200924, end: 20200924
  2. TREAKISYM [Suspect]
     Active Substance: BENDAMUSTINE HYDROCHLORIDE
     Indication: B-CELL LYMPHOMA
     Dosage: DATE OF MOST RECENT DOSE OF BENDAMUSTINE HYDROCHLORIDE: 25/SEP/2020
     Route: 041
     Dates: start: 20200527
  3. OBINUTUZUMAB. [Suspect]
     Active Substance: OBINUTUZUMAB
     Route: 041
     Dates: start: 20200827, end: 20200827
  4. OBINUTUZUMAB. [Suspect]
     Active Substance: OBINUTUZUMAB
     Route: 041
     Dates: start: 20201028, end: 20201028
  5. OBINUTUZUMAB. [Suspect]
     Active Substance: OBINUTUZUMAB
     Route: 041
     Dates: start: 20200602, end: 20200602
  6. OBINUTUZUMAB. [Suspect]
     Active Substance: OBINUTUZUMAB
     Indication: B-CELL LYMPHOMA
     Route: 041
     Dates: start: 20200526, end: 20200526
  7. OBINUTUZUMAB. [Suspect]
     Active Substance: OBINUTUZUMAB
     Route: 041
     Dates: start: 20200623, end: 20200623
  8. OBINUTUZUMAB. [Suspect]
     Active Substance: OBINUTUZUMAB
     Route: 041
     Dates: start: 20200721, end: 20200721

REACTIONS (4)
  - Neutrophil count decreased [Recovered/Resolved]
  - Febrile neutropenia [Recovered/Resolved]
  - Infusion related reaction [Recovering/Resolving]
  - Infection [Recovered/Resolved]

NARRATIVE: CASE EVENT DATE: 20200608
